FAERS Safety Report 8388735-X (Version None)
Quarter: 2012Q2

REPORT INFORMATION
  Report Type: 
  Country: None (occurrence: None)
  Receive Date: 20120528
  Receipt Date: 20120515
  Transmission Date: 20120825
  Serious: Yes (Other)
  Sender: FDA-Public Use
  Company Number: FR-BRISTOL-MYERS SQUIBB COMPANY-16624736

PATIENT
  Age: 23 Year
  Sex: Female

DRUGS (3)
  1. CISPLATIN [Suspect]
     Indication: OVARIAN GERM CELL CANCER
  2. ETOPOSIDE [Suspect]
     Indication: OVARIAN GERM CELL CANCER
     Dosage: 1DF= 5G/M3
  3. BLEOMYCIN SULFATE [Suspect]
     Indication: OVARIAN GERM CELL CANCER
     Dosage: 5 DAYS

REACTIONS (3)
  - PREGNANCY [None]
  - LIVE BIRTH [None]
  - PRE-ECLAMPSIA [None]
